FAERS Safety Report 13708059 (Version 2)
Quarter: 2017Q3

REPORT INFORMATION
  Report Type: Spontaneous
  Country: JP (occurrence: JP)
  Receive Date: 20170630
  Receipt Date: 20170706
  Transmission Date: 20171127
  Serious: Yes (Other)
  Sender: FDA-Public Use
  Company Number: JP-PFIZER INC-2017280272

PATIENT

DRUGS (2)
  1. INLYTA [Suspect]
     Active Substance: AXITINIB
     Dosage: 10 MG, DAILY
     Route: 048
  2. INLYTA [Suspect]
     Active Substance: AXITINIB
     Indication: RENAL CELL CARCINOMA
     Dosage: 14 MG, DAILY
     Route: 048

REACTIONS (4)
  - Skin disorder [Unknown]
  - Renal impairment [Unknown]
  - Palmar-plantar erythrodysaesthesia syndrome [Unknown]
  - Generalised oedema [Unknown]
